FAERS Safety Report 14919782 (Version 1)
Quarter: 2018Q2

REPORT INFORMATION
  Report Type: Report from Study
  Country: US (occurrence: US)
  Receive Date: 20180521
  Receipt Date: 20180521
  Transmission Date: 20180711
  Serious: Yes (Other)
  Sender: FDA-Public Use
  Company Number: US-ROCHE-2127284

PATIENT
  Age: 33 Year
  Sex: Female

DRUGS (1)
  1. CLONAZEPAM. [Suspect]
     Active Substance: CLONAZEPAM
     Indication: EPILEPSY
     Route: 065

REACTIONS (3)
  - Social avoidant behaviour [Unknown]
  - Unresponsive to stimuli [Unknown]
  - Aggression [Unknown]
